FAERS Safety Report 8210863-X (Version None)
Quarter: 2012Q1

REPORT INFORMATION
  Report Type: 
  Country: None (occurrence: None)
  Receive Date: 20120315
  Receipt Date: 20120301
  Transmission Date: 20120608
  Serious: Yes (Disabling, Other)
  Sender: FDA-Public Use
  Company Number: GB-ACCORD-012647

PATIENT
  Age: 56 Year
  Sex: Female
  Weight: 90 kg

DRUGS (2)
  1. SIMVASTATIN [Suspect]
     Indication: HYPERTENSION
     Route: 048
     Dates: end: 20120201
  2. BENDROFLUAZIDE [Concomitant]
     Indication: HYPERTENSION
     Dosage: ONGOING
     Route: 048
     Dates: start: 20080909

REACTIONS (1)
  - EAR CONGESTION [None]
